FAERS Safety Report 7827571-7 (Version None)
Quarter: 2011Q4

REPORT INFORMATION
  Report Type: 
  Country: None (occurrence: None)
  Receive Date: 20111020
  Receipt Date: 20111013
  Transmission Date: 20120403
  Serious: Yes (Hospitalization)
  Sender: FDA-Public Use
  Company Number: PHHY2011ZA91998

PATIENT
  Age: 2 Year
  Sex: Male

DRUGS (1)
  1. CLOZAPINE [Suspect]

REACTIONS (4)
  - CONVULSION [None]
  - SOMNOLENCE [None]
  - ACCIDENTAL DRUG INTAKE BY CHILD [None]
  - SALIVARY HYPERSECRETION [None]
